FAERS Safety Report 17672042 (Version 2)
Quarter: 2020Q2

REPORT INFORMATION
  Report Type: Spontaneous
  Country: US (occurrence: US)
  Receive Date: 20200415
  Receipt Date: 20200605
  Transmission Date: 20200713
  Serious: No
  Sender: FDA-Public Use
  Company Number: US-ELI_LILLY_AND_COMPANY-US202004002572

PATIENT
  Age: 59 Year
  Sex: Male

DRUGS (2)
  1. EMGALITY [Suspect]
     Active Substance: GALCANEZUMAB-GNLM
     Indication: MIGRAINE
     Dosage: 120 MG, LOADING DOSE
     Route: 058
     Dates: start: 20200405
  2. EMGALITY [Suspect]
     Active Substance: GALCANEZUMAB-GNLM
     Dosage: 120 MG, UNKNOWN
     Route: 058
     Dates: start: 20200601

REACTIONS (5)
  - Alopecia [Unknown]
  - Pruritus [Unknown]
  - Underdose [Unknown]
  - Injection site haemorrhage [Unknown]
  - Taste disorder [Unknown]

NARRATIVE: CASE EVENT DATE: 20200405
